FAERS Safety Report 10255562 (Version 3)
Quarter: 2014Q3

REPORT INFORMATION
  Report Type: Spontaneous
  Country: GB (occurrence: None)
  Receive Date: 20140620
  Receipt Date: 20140722
  Transmission Date: 20150326
  Serious: Yes (Other)
  Sender: FDA-Public Use
  Company Number: AUR-APL-2014-06499

PATIENT
  Age: 53 Year
  Sex: Female

DRUGS (2)
  1. FLUCOXETINE [Suspect]
     Active Substance: FLUOXETINE HYDROCHLORIDE
     Indication: PRODUCT USED FOR UNKNOWN INDICATION
  2. CLOZAPINE. [Suspect]
     Active Substance: CLOZAPINE
     Indication: SCHIZOPHRENIA
     Route: 048
     Dates: start: 20121011

REACTIONS (6)
  - White blood cell count increased [None]
  - No adverse event [None]
  - Off label use [None]
  - Neutrophil count increased [None]
  - Drug interaction [None]
  - Antipsychotic drug level increased [None]

NARRATIVE: CASE EVENT DATE: 20140403
